FAERS Safety Report 5126119-8 (Version None)
Quarter: 2006Q3

REPORT INFORMATION
  Report Type: 
  Country: None (occurrence: None)
  Receive Date: 20060811
  Receipt Date: 20060602
  Transmission Date: 20061208
  Serious: No
  Sender: FDA-Public Use
  Company Number: S06-USA-02147-01

PATIENT
  Age: 75 Year
  Sex: Female

DRUGS (4)
  1. NAMENDA [Suspect]
     Dosage: 10 MG BID PO
     Route: 048
  2. NAMENDA [Suspect]
     Dates: start: 20040501
  3. LEXAPRO [Suspect]
  4. RAZADYNE [Concomitant]

REACTIONS (1)
  - GAIT DISTURBANCE [None]
